FAERS Safety Report 13301873 (Version 2)
Quarter: 2017Q1

REPORT INFORMATION
  Report Type: Spontaneous
  Country: AU (occurrence: AU)
  Receive Date: 20170307
  Receipt Date: 20170327
  Transmission Date: 20170428
  Serious: Yes (Hospitalization, Other)
  Sender: FDA-Public Use
  Company Number: AU-AMGEN-AUSSP2017032250

PATIENT
  Age: 21 Year
  Sex: Male

DRUGS (11)
  1. NEULASTA [Suspect]
     Active Substance: PEGFILGRASTIM
     Indication: PRODUCT USED FOR UNKNOWN INDICATION
     Dosage: UNK
     Route: 065
     Dates: start: 20151021
  2. CYCLOPHOSPHAMIDE. [Concomitant]
     Active Substance: CYCLOPHOSPHAMIDE
     Dosage: 200 MG/M2, QD DAY 2-5, 200MG/M2 BAG 50 ML SALINE OVER 15-30MINS
     Route: 042
  3. ETOPOSIDE. [Concomitant]
     Active Substance: ETOPOSIDE
     Indication: BURKITT^S LYMPHOMA
     Dosage: 60 MG/M2, UNK
     Route: 042
     Dates: start: 20151016
  4. CYCLOPHOSPHAMIDE. [Concomitant]
     Active Substance: CYCLOPHOSPHAMIDE
     Indication: BURKITT^S LYMPHOMA
     Dosage: 800 MG/M2, QD, DAY 1, 800MG/M2 BAG 50ML SALINE OVER 30MIN
     Route: 042
     Dates: start: 20150918
  5. CYTARABINE. [Concomitant]
     Active Substance: CYTARABINE
     Indication: BURKITT^S LYMPHOMA
     Dosage: UNK
     Dates: start: 20150918
  6. FENTANYL. [Concomitant]
     Active Substance: FENTANYL
     Indication: PAIN
     Dosage: UNK
     Dates: start: 20151004
  7. FENTANYL. [Concomitant]
     Active Substance: FENTANYL
     Indication: POST LUMBAR PUNCTURE SYNDROME
  8. DOXORUBICIN [Concomitant]
     Active Substance: DOXORUBICIN
     Indication: BURKITT^S LYMPHOMA
     Dosage: 40 MG/M2, UNK
     Route: 040
     Dates: start: 20150918
  9. IFOSFAMIDE. [Concomitant]
     Active Substance: IFOSFAMIDE
     Indication: BURKITT^S LYMPHOMA
     Dosage: 1500 MG/M2, UNK
     Route: 042
     Dates: start: 20151016
  10. METHOTREXATE. [Concomitant]
     Active Substance: METHOTREXATE
     Indication: BURKITT^S LYMPHOMA
     Dosage: UNK
     Route: 037
     Dates: start: 20150918
  11. VINCRISTINE [Concomitant]
     Active Substance: VINCRISTINE
     Indication: BURKITT^S LYMPHOMA
     Dosage: 2 MG, UNK
     Route: 040
     Dates: start: 20150918

REACTIONS (8)
  - Febrile neutropenia [Unknown]
  - Vomiting [Unknown]
  - Anaemia [Unknown]
  - Dehydration [Unknown]
  - Neutropenic sepsis [Unknown]
  - Pain [Unknown]
  - Nausea [Unknown]
  - Post lumbar puncture syndrome [Unknown]
